FAERS Safety Report 19007324 (Version 1)
Quarter: 2021Q1

REPORT INFORMATION
  Report Type: Spontaneous
  Country: IL (occurrence: IL)
  Receive Date: 20210315
  Receipt Date: 20210315
  Transmission Date: 20210420
  Serious: Yes (Death, Hospitalization)
  Sender: FDA-Public Use
  Company Number: IL-TEVA-2021-IL-1887689

PATIENT
  Age: 18 Day
  Sex: Male

DRUGS (8)
  1. NOREPINEPHRINE. [Suspect]
     Active Substance: NOREPINEPHRINE
     Indication: SEPTIC SHOCK
     Dosage: 0.23 MCG/KG/MIN
     Route: 065
  2. EPINEPHRINE. [Suspect]
     Active Substance: EPINEPHRINE
     Indication: SEPTIC SHOCK
     Dosage: 0.42 MCG/KG/MIN
     Route: 065
  3. DOPAMINE [Suspect]
     Active Substance: DOPAMINE HYDROCHLORIDE
     Indication: SEPTIC SHOCK
     Dosage: 10 MCG/KG/MIN
     Route: 065
  4. NITROUS OXIDE. [Suspect]
     Active Substance: NITROUS OXIDE
     Indication: SEPTIC SHOCK
  5. METHYLENE BLUE. [Suspect]
     Active Substance: METHYLENE BLUE
     Indication: VASOPLEGIA SYNDROME
     Dosage: 144 MG/KG DAILY; LOADING DOSE OF 1 MG/KG OVER 10 MINUTES AND THEN A CONTINUOUS INFUSION AT A RATE OF
     Route: 065
  6. NITROUS OXIDE. [Suspect]
     Active Substance: NITROUS OXIDE
     Indication: VASOPLEGIA SYNDROME
     Route: 065
  7. METHYLENE BLUE. [Suspect]
     Active Substance: METHYLENE BLUE
     Indication: SEPTIC SHOCK
     Dosage: 0.25 MG/KG/HOUR
     Route: 065
  8. VASOPRESSIN. [Suspect]
     Active Substance: VASOPRESSIN
     Indication: SEPTIC SHOCK
     Dosage: 0.05 U/KG/HOUR
     Route: 065

REACTIONS (4)
  - Pulmonary hypertension [Unknown]
  - Distributive shock [Unknown]
  - Hypoxia [Unknown]
  - Drug ineffective [Fatal]
